FAERS Safety Report 10368618 (Version 1)
Quarter: 2014Q3

REPORT INFORMATION
  Report Type: Spontaneous
  Country: JP (occurrence: JP)
  Receive Date: 20140807
  Receipt Date: 20140807
  Transmission Date: 20150326
  Serious: Yes (Death, Other)
  Sender: FDA-Public Use
  Company Number: PHHY2010JP095924

PATIENT
  Age: 75 Year
  Sex: Male

DRUGS (4)
  1. NSAID^S [Concomitant]
     Active Substance: UNSPECIFIED INGREDIENT
  2. SANDOSTATIN [Suspect]
     Active Substance: OCTREOTIDE ACETATE
     Indication: OFF LABEL USE
  3. SANDOSTATIN [Suspect]
     Active Substance: OCTREOTIDE ACETATE
     Indication: PANCREATIC CARCINOMA
     Dosage: 300 UG, DAILY
     Route: 058
     Dates: start: 2010
  4. BUSCOPAN [Concomitant]
     Active Substance: BUTYLSCOPOLAMINE BROMIDE

REACTIONS (1)
  - Death [Fatal]
